FAERS Safety Report 10465110 (Version 4)
Quarter: 2024Q4

REPORT INFORMATION
  Report Type: Spontaneous
  Country: GR (occurrence: GR)
  Receive Date: 20140919
  Receipt Date: 20241028
  Transmission Date: 20250114
  Serious: Yes (Death, Other)
  Sender: MYLAN
  Company Number: None

PATIENT
  Age: 34 Year
  Sex: Female
  Weight: 53 kg

DRUGS (11)
  1. ONDANSETRON [Suspect]
     Active Substance: ONDANSETRON
     Indication: Prophylaxis of nausea and vomiting
     Dosage: UNK
     Route: 065
     Dates: start: 20140702, end: 20140704
  2. ETOPOSIDE [Suspect]
     Active Substance: ETOPOSIDE
     Indication: Hodgkin^s disease
     Dosage: 300 MILLIGRAM DAYS 1-3
     Route: 042
     Dates: start: 20140702, end: 20140704
  3. DOXORUBICIN HYDROCHLORIDE [Suspect]
     Active Substance: DOXORUBICIN HYDROCHLORIDE
     Indication: Hodgkin^s disease
     Dosage: 55 MILLIGRAM DAY 1
     Route: 042
     Dates: start: 20140702, end: 20140704
  4. CYCLOPHOSPHAMIDE [Suspect]
     Active Substance: CYCLOPHOSPHAMIDE
     Indication: Hodgkin^s disease
     Dosage: 1950 MILLIGRAM  DAY1
     Route: 042
     Dates: start: 20140702, end: 20140704
  5. FILGRASTIM [Suspect]
     Active Substance: FILGRASTIM
     Indication: White blood cell count decreased
     Dosage: ADMINISTERED ON 10/7 AND 12/7/2014, ACCORDING TO THE MOTHER
     Route: 065
     Dates: start: 20140710, end: 20140712
  6. CORTISONE [Suspect]
     Active Substance: CORTISONE
     Indication: Hodgkin^s disease
     Dosage: UNK
     Route: 065
     Dates: start: 20140702, end: 20140704
  7. ZANTAC [Suspect]
     Active Substance: RANITIDINE HYDROCHLORIDE
     Indication: Product used for unknown indication
     Dosage: FOR THE DAYS CORTISONE IS ADMINISTERED (1 IN 12 HOUR)
     Route: 065
     Dates: start: 20140702
  8. PREDNISOLONE [Suspect]
     Active Substance: PREDNISOLONE
     Indication: Hodgkin^s disease
     Dosage: 20MG 3 TIMES A DAY FOR DAYS1-14
     Route: 048
  9. EMEND [Suspect]
     Active Substance: APREPITANT
     Indication: Prophylaxis of nausea and vomiting
     Dosage: 125-80-80 THE 3 FIRST DAYS OF EACH CYCLE
     Route: 065
     Dates: start: 20140702
  10. ONDANSETRON [Suspect]
     Active Substance: ONDANSETRON
     Indication: Product used for unknown indication
     Dosage: 8MG WHEN HAVING NAUSEA AND UP TO 2 TABLETS PER DAY
     Route: 065
  11. ALLOPURINOL [Concomitant]
     Active Substance: ALLOPURINOL
     Dosage: CONTINUOUSLY
     Route: 065
     Dates: start: 20140702

REACTIONS (8)
  - Cardiac arrest [Fatal]
  - Aspiration [Fatal]
  - Myocardial ischaemia [Fatal]
  - Pyrexia [Unknown]
  - Vomiting [Unknown]
  - Neutropenia [Unknown]
  - Diarrhoea [Unknown]
  - Tachycardia [Unknown]

NARRATIVE: CASE EVENT DATE: 20140709
